FAERS Safety Report 18335536 (Version 3)
Quarter: 2020Q4

REPORT INFORMATION
  Report Type: Spontaneous
  Country: US (occurrence: US)
  Receive Date: 20201001
  Receipt Date: 20201217
  Transmission Date: 20210113
  Serious: Yes (Hospitalization)
  Sender: FDA-Public Use
  Company Number: US-JNJFOC-A-NJ2020-207946

PATIENT
  Age: 9 Month
  Sex: Female

DRUGS (5)
  1. ACETAMINOPHEN. [Concomitant]
     Active Substance: ACETAMINOPHEN
     Dosage: 15 MG/KG, QBHPRN
     Route: 048
     Dates: start: 20200601
  2. POLY-VI-SOL [ASCORBIC ACID;COLECALCIFEROL;NICOTINAMIDE;RETINOL;RIBOFLA [Concomitant]
     Dosage: 1 ML
     Route: 048
  3. TRACLEER [Suspect]
     Active Substance: BOSENTAN
     Dosage: 16 MG, Q12HRS
     Route: 048
     Dates: start: 20200611
  4. RIOCIGUAT. [Concomitant]
     Active Substance: RIOCIGUAT
     Dosage: 1.5 MG
     Dates: start: 20200122
  5. TRACLEER [Suspect]
     Active Substance: BOSENTAN
     Indication: PULMONARY HYPERTENSION
     Dosage: UNK
     Route: 048

REACTIONS (7)
  - Hospitalisation [Unknown]
  - Tracheostomy infection [Unknown]
  - Mechanical ventilation [Unknown]
  - Lung transplant [Recovering/Resolving]
  - Endotracheal intubation [Unknown]
  - Tracheostomy [Not Recovered/Not Resolved]
  - Gastrostomy [Unknown]

NARRATIVE: CASE EVENT DATE: 20201015
